FAERS Safety Report 21473953 (Version 1)
Quarter: 2022Q4

REPORT INFORMATION
  Report Type: Spontaneous
  Country: DE (occurrence: DE)
  Receive Date: 20221018
  Receipt Date: 20221018
  Transmission Date: 20230112
  Serious: Yes (Other)
  Sender: FDA-Public Use
  Company Number: DE-ELI_LILLY_AND_COMPANY-DE202210002981

PATIENT
  Age: 67 Year
  Sex: Female

DRUGS (1)
  1. SELPERCATINIB [Suspect]
     Active Substance: SELPERCATINIB
     Indication: Non-small cell lung cancer
     Dosage: UNK UNK, UNKNOWN
     Route: 065
     Dates: start: 20201027

REACTIONS (9)
  - Pleural thickening [Unknown]
  - Lung opacity [Unknown]
  - Pneumonitis [Unknown]
  - Cough [Unknown]
  - Psoriatic arthropathy [Unknown]
  - Anaemia [Unknown]
  - Blood bilirubin increased [Unknown]
  - Fatigue [Unknown]
  - Alanine aminotransferase increased [Unknown]

NARRATIVE: CASE EVENT DATE: 20210601
